FAERS Safety Report 8280009-0 (Version None)
Quarter: 2012Q2

REPORT INFORMATION
  Report Type: 
  Country: None (occurrence: None)
  Receive Date: 20120412
  Receipt Date: 20120131
  Transmission Date: 20120825
  Serious: No
  Sender: FDA-Public Use
  Company Number: US-ASTRAZENECA-2012SE06548

PATIENT
  Sex: Female
  Weight: 59 kg

DRUGS (4)
  1. PREDNISONE TAB [Concomitant]
     Indication: IODINE ALLERGY
  2. BIRTH CONTROL PILL [Concomitant]
  3. NEXIUM [Suspect]
     Indication: GASTROOESOPHAGEAL REFLUX DISEASE
     Route: 048
     Dates: start: 20120120
  4. OTC ASPIRIN [Concomitant]

REACTIONS (7)
  - DRY MOUTH [None]
  - OFF LABEL USE [None]
  - CONSTIPATION [None]
  - SOMNOLENCE [None]
  - ABDOMINAL PAIN [None]
  - NAUSEA [None]
  - FLATULENCE [None]
